FAERS Safety Report 5473870-6 (Version None)
Quarter: 2007Q4

REPORT INFORMATION
  Report Type: 
  Country: None (occurrence: None)
  Receive Date: 20071001
  Receipt Date: 20070919
  Transmission Date: 20080405
  Serious: Yes (Other)
  Sender: FDA-Public Use
  Company Number: AU-PFIZER INC-2007078954

PATIENT
  Sex: Male

DRUGS (1)
  1. SUTENT [Suspect]

REACTIONS (6)
  - ASTHENIA [None]
  - DEHYDRATION [None]
  - DRUG INTOLERANCE [None]
  - MOBILITY DECREASED [None]
  - MUCOSAL INFLAMMATION [None]
  - RENAL FAILURE ACUTE [None]
